FAERS Safety Report 5011286-7 (Version None)
Quarter: 2006Q2

REPORT INFORMATION
  Report Type: 
  Country: None (occurrence: None)
  Receive Date: 20060523
  Receipt Date: 20060523
  Transmission Date: 20061013
  Serious: No
  Sender: FDA-Public Use
  Company Number: None

PATIENT
  Sex: Male
  Weight: 242.2 kg

DRUGS (7)
  1. GATIFLOXACIN [Suspect]
     Indication: INFECTION
     Dosage: 400 MG Q DAY PO
     Route: 048
     Dates: start: 20040803, end: 20040901
  2. VICODIN [Concomitant]
  3. IRBESARTAN [Concomitant]
  4. ROFECOXIB [Concomitant]
  5. SILDENAFIL CITRATE [Concomitant]
  6. SIMVASTATIN [Concomitant]
  7. GLYBURIDE [Concomitant]

REACTIONS (1)
  - HYPOGLYCAEMIA [None]
